FAERS Safety Report 6640905-4 (Version None)
Quarter: 2010Q1

REPORT INFORMATION
  Report Type: 
  Country: None (occurrence: None)
  Receive Date: 20100302
  Receipt Date: 20100115
  Transmission Date: 20100710
  Serious: No
  Sender: FDA-Public Use
  Company Number: 2009295614

PATIENT
  Age: 63 Year
  Sex: Female
  Weight: 79.8 kg

DRUGS (17)
  1. TOVIAZ [Suspect]
     Indication: STRESS URINARY INCONTINENCE
     Dosage: 8 MG, 1X/DAY, ORAL
     Route: 048
     Dates: start: 20091014, end: 20091105
  2. RAMIPRIL [Concomitant]
  3. DILAUDID [Concomitant]
  4. PROTONIX [Concomitant]
  5. NEURONTIN [Concomitant]
  6. CARVEDILOL [Concomitant]
  7. LEVETIRACETAM [Concomitant]
  8. WARFARIN SODIUM [Concomitant]
  9. LOMOTIL [Concomitant]
  10. PRAVASTATIN [Concomitant]
  11. VITACAL (CALCIUM, VITAMIN D NOS) [Concomitant]
  12. MAGNESIUM (MAGNESIUM) [Concomitant]
  13. VITAMIN D [Concomitant]
  14. COD LIVER OIL FORTIFIED TAB [Concomitant]
  15. ZINC (ZINC) [Concomitant]
  16. FISH OIL (FISH OIL) [Concomitant]
  17. SOMA [Concomitant]

REACTIONS (1)
  - RASH [None]
